FAERS Safety Report 7244645-2 (Version None)
Quarter: 2011Q1

REPORT INFORMATION
  Report Type: 
  Country: None (occurrence: None)
  Receive Date: 20110125
  Receipt Date: 20101006
  Transmission Date: 20110831
  Serious: No
  Sender: FDA-Public Use
  Company Number: US-MYLANLABS-2010S1018688

PATIENT

DRUGS (1)
  1. LIOTHYRONINE SODIUM [Suspect]

REACTIONS (1)
  - BLOOD GLUCOSE INCREASED [None]
